FAERS Safety Report 19357870 (Version 1)
Quarter: 2021Q2

REPORT INFORMATION
  Report Type: Report from Study
  Country: AR (occurrence: AR)
  Receive Date: 20210531
  Receipt Date: 20210531
  Transmission Date: 20210717
  Serious: Yes (Other)
  Sender: FDA-Public Use
  Company Number: NVSC2021AR117016

PATIENT
  Sex: Female

DRUGS (1)
  1. DIOVAN [Suspect]
     Active Substance: VALSARTAN
     Indication: PRODUCT USED FOR UNKNOWN INDICATION
     Dosage: 160 OT (MANY YEARS AO)
     Route: 065

REACTIONS (4)
  - Cerebral disorder [Unknown]
  - Memory impairment [Unknown]
  - Fatigue [Unknown]
  - Cerebral infarction [Unknown]
